FAERS Safety Report 20549168 (Version 9)
Quarter: 2022Q2

REPORT INFORMATION
  Report Type: Report from Study
  Country: ES (occurrence: ES)
  Receive Date: 20220303
  Receipt Date: 20220610
  Transmission Date: 20220720
  Serious: Yes (Hospitalization, Other)
  Sender: FDA-Public Use
  Company Number: ES-ABBVIE-22K-144-4299111-00

PATIENT
  Age: 74 Year
  Sex: Female
  Weight: 48 kg

DRUGS (3)
  1. CARBIDOPA\LEVODOPA [Suspect]
     Active Substance: CARBIDOPA\LEVODOPA
     Indication: Parkinson^s disease
     Route: 050
     Dates: start: 20190131
  2. CARBIDOPA\LEVODOPA [Suspect]
     Active Substance: CARBIDOPA\LEVODOPA
  3. LINITUL [Concomitant]
     Indication: Stoma site irritation
     Route: 061
     Dates: start: 202202

REACTIONS (18)
  - Duodenitis [Unknown]
  - Condition aggravated [Unknown]
  - Intestinal obstruction [Recovered/Resolved]
  - Off label use [Unknown]
  - Gastric disorder [Unknown]
  - Obsessive-compulsive disorder [Not Recovered/Not Resolved]
  - Device dislocation [Unknown]
  - Aggression [Recovered/Resolved]
  - Duodenal ulcer [Recovered/Resolved]
  - Bezoar [Recovered/Resolved]
  - Therapeutic product effect decreased [Unknown]
  - Stoma site erythema [Not Recovered/Not Resolved]
  - Abdominal distension [Recovered/Resolved]
  - Therapeutic product effect incomplete [Unknown]
  - On and off phenomenon [Recovering/Resolving]
  - Stoma site irritation [Unknown]
  - Constipation [Recovered/Resolved]
  - On and off phenomenon [Recovering/Resolving]

NARRATIVE: CASE EVENT DATE: 20220201
